FAERS Safety Report 7744346-8 (Version None)
Quarter: 2011Q3

REPORT INFORMATION
  Report Type: 
  Country: None (occurrence: None)
  Receive Date: 20110912
  Receipt Date: 20110906
  Transmission Date: 20111222
  Serious: Yes (Hospitalization)
  Sender: FDA-Public Use
  Company Number: GB-PFIZER INC-2011209131

PATIENT
  Age: 76 Year
  Sex: Male

DRUGS (8)
  1. MIRTAZAPINE [Interacting]
     Dosage: 60 MG
  2. MIRTAZAPINE [Interacting]
     Dosage: 45 MG
  3. MIRTAZAPINE [Interacting]
     Dosage: 15 MG
     Dates: start: 20050101
  4. AMLODIPINE [Concomitant]
     Indication: HYPERTENSION
     Dosage: UNK
  5. BENDROFLUAZIDE [Interacting]
     Indication: HYPERTENSION
     Dosage: UNK
  6. MIRTAZAPINE [Interacting]
     Dosage: 30 MG
  7. VALSARTAN [Concomitant]
     Indication: HYPERTENSION
     Dosage: UNK
  8. TRAZODONE HCL [Suspect]
     Dosage: 75 MG

REACTIONS (5)
  - URINARY HESITATION [None]
  - CIRCULATORY COLLAPSE [None]
  - DRUG INTERACTION [None]
  - BLOOD SODIUM DECREASED [None]
  - HEAD INJURY [None]
